FAERS Safety Report 8695225 (Version 3)
Quarter: 2013Q2

REPORT INFORMATION
  Report Type: Spontaneous
  Country: JP (occurrence: None)
  Receive Date: 20120713
  Receipt Date: 20130424
  Transmission Date: 20140414
  Serious: Yes (Hospitalization)
  Sender: FDA-Public Use
  Company Number: TCI2010A03537

PATIENT
  Age: 61 Year
  Sex: Male

DRUGS (6)
  1. ACTOS [Suspect]
     Indication: TYPE 2 DIABETES MELLITUS
     Dosage: 15 MG (15 MG, 1 D), PER ORAL
     Route: 048
     Dates: start: 20090223
  2. CALSLOT (MANIDIPINE HYDROCHLORIDE) [Concomitant]
  3. IRBETAN (IRBESARTAN) [Concomitant]
  4. BLOPRESS (CANDESARTAN CILEXETIL) [Concomitant]
  5. AMARYL (GLIMEPIRIDE) [Concomitant]
  6. NORVASC (AMLODIPINE BESILATE) [Concomitant]

REACTIONS (3)
  - Gastric cancer [None]
  - Blood creatinine increased [None]
  - Laboratory test abnormal [None]
